FAERS Safety Report 23874355 (Version 1)
Quarter: 2024Q2

REPORT INFORMATION
  Report Type: Spontaneous
  Country: US (occurrence: None)
  Receive Date: 20240518
  Receipt Date: 20240518
  Transmission Date: 20240716
  Serious: Yes (Hospitalization)
  Sender: FDA-Public Use
  Company Number: None

PATIENT
  Age: 14 Year
  Sex: Male

DRUGS (3)
  1. NOVOSEVEN RT [Suspect]
     Active Substance: COAGULATION FACTOR VIIA RECOMBINANT HUMAN
     Indication: Factor VIII deficiency
     Dosage: 1MG PRN IV
     Route: 042
     Dates: start: 202112
  2. NOVOSEVEN RT [Suspect]
     Active Substance: COAGULATION FACTOR VIIA RECOMBINANT HUMAN
     Indication: Factor VIII deficiency
     Dosage: 5MG PRN IV
     Route: 042
     Dates: start: 202112
  3. HEMUBRA SDV [Concomitant]

REACTIONS (2)
  - Limb injury [None]
  - Haemorrhage [None]

NARRATIVE: CASE EVENT DATE: 20240514
